FAERS Safety Report 6992491-7 (Version None)
Quarter: 2010Q3

REPORT INFORMATION
  Report Type: 
  Country: None (occurrence: None)
  Receive Date: 20100916
  Receipt Date: 20100916
  Transmission Date: 20110219
  Serious: No
  Sender: FDA-Public Use
  Company Number: None

PATIENT
  Age: 67 Year
  Sex: Male

DRUGS (1)
  1. CEFEPIME 2MG [Suspect]
     Dosage: CEFEPIME 2MG DAILY IV
     Route: 042
     Dates: start: 20091108, end: 20091115

REACTIONS (1)
  - MYOCLONUS [None]
